FAERS Safety Report 20567074 (Version 2)
Quarter: 2023Q1

REPORT INFORMATION
  Report Type: Spontaneous
  Country: CA (occurrence: CA)
  Receive Date: 20220308
  Receipt Date: 20230224
  Transmission Date: 20230418
  Serious: Yes (Life-Threatening, Hospitalization, Other)
  Sender: FDA-Public Use
  Company Number: CA-TEVA-2022-CA-2013504

PATIENT
  Age: 62 Year
  Sex: Female
  Weight: 66 kg

DRUGS (18)
  1. LEUCOVORIN [Suspect]
     Active Substance: LEUCOVORIN
     Indication: Product used for unknown indication
     Route: 042
  2. OXALIPLATIN [Suspect]
     Active Substance: OXALIPLATIN
     Indication: Product used for unknown indication
     Route: 042
  3. PAROXETINE HYDROCHLORIDE [Suspect]
     Active Substance: PAROXETINE HYDROCHLORIDE
     Indication: Product used for unknown indication
     Route: 065
  4. TRASTUZUMAB [Suspect]
     Active Substance: TRASTUZUMAB
     Indication: Product used for unknown indication
     Route: 042
  5. FLUOROURACIL [Suspect]
     Active Substance: FLUOROURACIL
     Indication: Product used for unknown indication
     Route: 042
  6. FLUOROURACIL [Suspect]
     Active Substance: FLUOROURACIL
     Route: 042
  7. FLUOROURACIL [Suspect]
     Active Substance: FLUOROURACIL
     Route: 042
  8. BENADRYL [Concomitant]
     Active Substance: DIPHENHYDRAMINE HYDROCHLORIDE
     Indication: Product used for unknown indication
     Route: 065
  9. BUTYLSCOPOLAMINE BROMIDE [Concomitant]
     Active Substance: BUTYLSCOPOLAMINE BROMIDE
     Indication: Product used for unknown indication
     Route: 065
  10. CODEINE [Concomitant]
     Active Substance: CODEINE
     Indication: Product used for unknown indication
     Route: 065
  11. DECADRON [Concomitant]
     Active Substance: DEXAMETHASONE
     Indication: Product used for unknown indication
     Route: 065
  12. IMODIUM [Concomitant]
     Active Substance: LOPERAMIDE HYDROCHLORIDE
     Indication: Product used for unknown indication
     Route: 065
  13. LEVOTHYROXINE SODIUM [Concomitant]
     Active Substance: LEVOTHYROXINE SODIUM
     Indication: Product used for unknown indication
     Route: 065
  14. METOCLOPRAMIDE HYDROCHLORIDE [Concomitant]
     Active Substance: METOCLOPRAMIDE HYDROCHLORIDE
     Indication: Product used for unknown indication
     Route: 065
  15. ONDANSETRON HYDROCHLORIDE [Concomitant]
     Active Substance: ONDANSETRON HYDROCHLORIDE
     Indication: Product used for unknown indication
     Route: 065
  16. PANTOPRAZOLE SODIUM [Concomitant]
     Active Substance: PANTOPRAZOLE SODIUM
     Indication: Product used for unknown indication
     Route: 065
  17. VARENICLINE TARTRATE [Concomitant]
     Active Substance: VARENICLINE TARTRATE
     Indication: Product used for unknown indication
     Route: 065
  18. METOCLOPRAMIDE HYDROCHLORIDE [Concomitant]
     Active Substance: METOCLOPRAMIDE HYDROCHLORIDE
     Indication: Product used for unknown indication
     Route: 065

REACTIONS (4)
  - Enterocolitis [Unknown]
  - Neutropenia [Unknown]
  - Septic shock [Unknown]
  - Transfusion [Unknown]
